FAERS Safety Report 13582737 (Version 2)
Quarter: 2017Q2

REPORT INFORMATION
  Report Type: Report from Study
  Country: CA (occurrence: CA)
  Receive Date: 20170525
  Receipt Date: 20170619
  Transmission Date: 20170830
  Serious: Yes (Other)
  Sender: FDA-Public Use
  Company Number: CA-HLSUS-2017-CA-000438

PATIENT
  Age: 23 Year
  Sex: Male

DRUGS (5)
  1. LACTULOSE. [Concomitant]
     Active Substance: LACTULOSE
     Indication: CONSTIPATION
     Dosage: 15-30ML AS NEEEDED
     Route: 048
  2. METHADONE [Concomitant]
     Active Substance: METHADONE HYDROCHLORIDE
     Dosage: 15MG DAILY MORNING
     Route: 048
  3. DESMOPRESSIN [Concomitant]
     Active Substance: DESMOPRESSIN
     Dosage: 0.2MG DAILY BED TIME
     Route: 048
  4. ATROPINE 1% [Concomitant]
     Active Substance: ATROPINE
     Indication: DROOLING
     Dosage: 2 DROPS DAILY BED TIME AS NEEDED
  5. CLOZARIL [Suspect]
     Active Substance: CLOZAPINE
     Route: 048
     Dates: start: 20150610

REACTIONS (3)
  - Sinus tachycardia [Unknown]
  - Myocardial infarction [Unknown]
  - Electrocardiogram Q wave abnormal [Unknown]

NARRATIVE: CASE EVENT DATE: 20170425
